FAERS Safety Report 6126218-8 (Version None)
Quarter: 2009Q1

REPORT INFORMATION
  Report Type: 
  Country: None (occurrence: None)
  Receive Date: 20090320
  Receipt Date: 20090316
  Transmission Date: 20090719
  Serious: Yes (Hospitalization)
  Sender: FDA-Public Use
  Company Number: B0565935A

PATIENT
  Age: 21 Year
  Sex: Female

DRUGS (2)
  1. AUGMENTIN '125' [Suspect]
     Indication: PROPHYLAXIS
     Dosage: 2G PER DAY
     Route: 042
     Dates: start: 20090302, end: 20090303
  2. PERFALGAN [Suspect]
     Indication: DRUG USE FOR UNKNOWN INDICATION
     Dosage: 1G PER DAY
     Route: 042
     Dates: start: 20090302, end: 20090303

REACTIONS (5)
  - DERMATITIS [None]
  - FACE OEDEMA [None]
  - GENERALISED ERYTHEMA [None]
  - PYREXIA [None]
  - RASH PAPULAR [None]
